FAERS Safety Report 5506673-4 (Version None)
Quarter: 2007Q4

REPORT INFORMATION
  Report Type: 
  Country: None (occurrence: None)
  Receive Date: 20071101
  Receipt Date: 20071005
  Transmission Date: 20080405
  Serious: Yes (Death, Life-Threatening, Hospitalization)
  Sender: FDA-Public Use
  Company Number: 60382

PATIENT
  Age: 28 Year
  Sex: Male

DRUGS (2)
  1. ACETAMINOPHEN 650MG/ PERRIGO COMPANY [Suspect]
     Dosage: ORALLY
     Route: 048
  2. IBUPROFEN [Suspect]
     Dosage: ORALLY
     Route: 048

REACTIONS (6)
  - ACUTE HEPATIC FAILURE [None]
  - COLITIS ISCHAEMIC [None]
  - GASTROINTESTINAL NECROSIS [None]
  - INTENTIONAL OVERDOSE [None]
  - RENAL FAILURE ACUTE [None]
  - RHABDOMYOLYSIS [None]
